FAERS Safety Report 16145672 (Version 1)
Quarter: 2019Q2

REPORT INFORMATION
  Report Type: Spontaneous
  Country: US (occurrence: US)
  Receive Date: 20190402
  Receipt Date: 20190402
  Transmission Date: 20190711
  Serious: No
  Sender: FDA-Public Use
  Company Number: US-BEH-2019100987

PATIENT
  Age: 22 Year
  Sex: Female

DRUGS (24)
  1. HIZENTRA [Suspect]
     Active Substance: HUMAN IMMUNOGLOBULIN G
     Indication: SELECTIVE IGG SUBCLASS DEFICIENCY
     Dosage: 12 G, QW
     Route: 065
     Dates: start: 20171013
  2. KUVAN [Concomitant]
     Active Substance: SAPROPTERIN DIHYDROCHLORIDE
     Dosage: 500 MG, UNK
     Route: 065
     Dates: start: 20190102
  3. PHENOBARB                          /00023201/ [Concomitant]
     Dosage: 15 MG, UNK
     Route: 065
     Dates: start: 20190102
  4. VITAMIN D3 [Concomitant]
     Active Substance: CHOLECALCIFEROL
     Dosage: 2000 IU, UNK
     Route: 065
     Dates: start: 20190102
  5. HIZENTRA [Suspect]
     Active Substance: HUMAN IMMUNOGLOBULIN G
     Dosage: 10 G, UNK
     Route: 065
  6. CANNABIDIOL [Concomitant]
     Active Substance: CANNABIDIOL
     Dosage: 100 MG/ML, UNK
     Route: 065
  7. CO Q 10                            /00517201/ [Concomitant]
     Dosage: 100 MG, UNK
     Route: 065
     Dates: start: 20190102
  8. MIRALAX [Concomitant]
     Active Substance: POLYETHYLENE GLYCOL 3350
     Route: 065
  9. SENNA                              /00142201/ [Concomitant]
     Active Substance: SENNA LEAF
     Dosage: 8.6 MG, UNK
     Route: 065
     Dates: start: 20190102
  10. VITAMIN B6 [Concomitant]
     Active Substance: PYRIDOXINE HYDROCHLORIDE
     Dosage: 100 MG, UNK
     Route: 065
     Dates: start: 20190102
  11. VITAMIN E                          /00110501/ [Concomitant]
     Active Substance: TOCOPHEROL
     Dosage: 400 IU, UNK
     Route: 065
     Dates: start: 20190102
  12. L-METHYLFOLATE CALCIUM [Concomitant]
     Active Substance: LEVOMEFOLATE CALCIUM
     Dosage: 15 MG, UNK
     Route: 065
     Dates: start: 20181022
  13. VITAMIN B12 [Concomitant]
     Active Substance: CYANOCOBALAMIN
     Dosage: 1000 ?G, UNK
     Route: 065
     Dates: start: 20190102
  14. CARBIDOPA AND LEVODOPA [Concomitant]
     Active Substance: CARBIDOPA\LEVODOPA
     Dosage: UNK
     Route: 065
     Dates: start: 20190102
  15. DILANTIN [Concomitant]
     Active Substance: PHENYTOIN
     Dosage: 100 MG, UNK
     Route: 065
     Dates: start: 20190102
  16. HYDROXYTRYPTOPHAN [Concomitant]
     Active Substance: OXITRIPTAN
     Dosage: UNK
     Route: 065
     Dates: start: 20190102
  17. PROVIGIL [Concomitant]
     Active Substance: MODAFINIL
     Dosage: 200 MG, UNK
     Route: 065
     Dates: start: 20190102
  18. VITAMIN C [Concomitant]
     Active Substance: ASCORBIC ACID
     Dosage: 500 MG, UNK
     Route: 065
     Dates: start: 20190102
  19. ACETAZOLAMID [Concomitant]
     Active Substance: ACETAZOLAMIDE
     Dosage: 250 MG, UNK
     Route: 065
     Dates: start: 20190102
  20. FOLIC ACID. [Concomitant]
     Active Substance: FOLIC ACID
     Dosage: 400 ?G, UNK
     Route: 065
     Dates: start: 20190102
  21. ONFI [Concomitant]
     Active Substance: CLOBAZAM
     Dosage: 20 MG, UNK
     Route: 065
     Dates: start: 20190102
  22. HIZENTRA [Suspect]
     Active Substance: HUMAN IMMUNOGLOBULIN G
     Dosage: 2 G, UNK
     Route: 065
  23. MELATONIN [Concomitant]
     Active Substance: MELATONIN
     Dosage: 5 MG, UNK
     Route: 065
     Dates: start: 20190102
  24. PREVACID [Concomitant]
     Active Substance: LANSOPRAZOLE
     Dosage: 30 MG, UNK
     Route: 065
     Dates: start: 20190102

REACTIONS (2)
  - Malaise [Not Recovered/Not Resolved]
  - Decreased appetite [Not Recovered/Not Resolved]

NARRATIVE: CASE EVENT DATE: 20190327
